FAERS Safety Report 22304970 (Version 1)
Quarter: 2023Q2

REPORT INFORMATION
  Report Type: Spontaneous
  Country: US (occurrence: None)
  Receive Date: 20230509
  Receipt Date: 20230509
  Transmission Date: 20230721
  Serious: Yes (Hospitalization)
  Sender: FDA-Public Use
  Company Number: None

PATIENT
  Sex: Female

DRUGS (3)
  1. SILDENAFIL CITRATE [Suspect]
     Active Substance: SILDENAFIL CITRATE
     Indication: Pulmonary arterial hypertension
     Dosage: FREQUENCY : 3 TIMES A DAY;?
     Route: 048
     Dates: start: 20221123
  2. OPSUMIT [Suspect]
     Active Substance: MACITENTAN
  3. UPTRAVI [Suspect]
     Active Substance: SELEXIPAG

REACTIONS (2)
  - Chest pain [None]
  - Decreased appetite [None]
